FAERS Safety Report 9646566 (Version 1)
Quarter: 2013Q4

REPORT INFORMATION
  Report Type: Spontaneous
  Country: AU (occurrence: AU)
  Receive Date: 20131025
  Receipt Date: 20131025
  Transmission Date: 20140711
  Serious: Yes (Other)
  Sender: FDA-Public Use
  Company Number: AU-ROCHE-1291782

PATIENT
  Age: 60 Year
  Sex: Female

DRUGS (4)
  1. AVASTIN [Suspect]
     Indication: NON-SMALL CELL LUNG CANCER
     Route: 065
  2. CARBOPLATIN [Concomitant]
  3. PACLITAXEL [Concomitant]
  4. PEMETREXED [Concomitant]

REACTIONS (3)
  - Lung neoplasm [Unknown]
  - Musculoskeletal chest pain [Unknown]
  - EGFR gene mutation [Unknown]
